FAERS Safety Report 8746611 (Version 3)
Quarter: 2012Q4

REPORT INFORMATION
  Report Type: Report from Study
  Country: JP (occurrence: JP)
  Receive Date: 20120827
  Receipt Date: 20121102
  Transmission Date: 20130627
  Serious: Yes (Other)
  Sender: FDA-Public Use
  Company Number: JP-ASTELLAS-2012US007237

PATIENT
  Age: 55 Year
  Sex: Female

DRUGS (37)
  1. ERLOTINIB TABLET [Suspect]
     Indication: ADENOCARCINOMA PANCREAS
     Dosage: 100 mg, UID/QD
     Route: 048
     Dates: start: 20120331, end: 20120413
  2. ERLOTINIB TABLET [Suspect]
     Dosage: 50 mg, UID/QD
     Route: 048
     Dates: start: 20120428, end: 20120629
  3. ERLOTINIB TABLET [Suspect]
     Dosage: 50 mg, UID/QD
     Route: 048
     Dates: start: 20120707, end: 20120801
  4. GEMCITABINE                        /01215702/ [Suspect]
     Indication: ADENOCARCINOMA PANCREAS
     Dosage: 1000 mg/m2, UID/QD
     Route: 041
     Dates: start: 20120330, end: 20120330
  5. GEMCITABINE                        /01215702/ [Suspect]
     Dosage: 800 mg/m2, UID/QD
     Route: 041
     Dates: start: 20120427, end: 20120427
  6. GEMCITABINE                        /01215702/ [Suspect]
     Dosage: 800 mg/m2, UID/QD
     Route: 041
     Dates: start: 20120511, end: 20120511
  7. GEMCITABINE                        /01215702/ [Suspect]
     Dosage: 800 mg/m2, UID/QD
     Route: 041
     Dates: start: 20120518, end: 20120518
  8. GEMCITABINE                        /01215702/ [Suspect]
     Dosage: 800 mg/m2, UID/QD
     Route: 041
     Dates: start: 20120601, end: 20120601
  9. GEMCITABINE                        /01215702/ [Suspect]
     Dosage: 800 mg/m2, UID/QD
     Route: 041
     Dates: start: 20120608, end: 20120608
  10. GEMCITABINE                        /01215702/ [Suspect]
     Dosage: 800 mg/m2, UID/QD
     Route: 041
     Dates: start: 20120615, end: 20120615
  11. GEMCITABINE                        /01215702/ [Suspect]
     Dosage: 800 mg/m2, UID/QD
     Route: 041
     Dates: start: 20120706, end: 20120706
  12. GEMCITABINE                        /01215702/ [Suspect]
     Dosage: 800 mg/m2, UID/QD
     Route: 041
     Dates: start: 20120720, end: 20120720
  13. GEMCITABINE                        /01215702/ [Suspect]
     Dosage: 800 mg/m2, UID/QD
     Route: 041
     Dates: start: 20120802, end: 20120802
  14. GEMCITABINE                        /01215702/ [Suspect]
     Dosage: 800 mg/m2, UID/QD
     Route: 041
     Dates: start: 20120817, end: 20120817
  15. GEMCITABINE                        /01215702/ [Suspect]
     Dosage: 800 mg/m2, UID/QD
     Route: 041
     Dates: start: 20120831
  16. LANSOPRAZOLE [Concomitant]
     Indication: GASTRIC ULCER
     Dosage: 15 mg, UID/QD
     Route: 048
     Dates: end: 20120712
  17. FENTOS [Concomitant]
     Indication: PRODUCT USED FOR UNKNOWN INDICATION
     Dosage: 1 mg, UID/QD
     Route: 062
     Dates: end: 20120524
  18. FENTOS [Concomitant]
     Dosage: 2 mg, UID/QD
     Route: 062
     Dates: start: 20120525
  19. OPSO [Concomitant]
     Indication: PRODUCT USED FOR UNKNOWN INDICATION
     Dosage: 10 mg, Unknown/D
     Route: 048
     Dates: end: 20120524
  20. GASMOTIN [Concomitant]
     Indication: PRODUCT USED FOR UNKNOWN INDICATION
     Dosage: 15 mg, UID/QD
     Route: 048
     Dates: end: 201208
  21. HIRUDOID                           /00723701/ [Concomitant]
     Indication: PRODUCT USED FOR UNKNOWN INDICATION
     Dosage: UNK
     Route: 003
  22. DEXART [Concomitant]
     Indication: PRODUCT USED FOR UNKNOWN INDICATION
     Dosage: 3.3 mg, UID/QD
     Route: 042
     Dates: start: 20120330, end: 20120330
  23. DEXART [Concomitant]
     Dosage: 3.3 mg, UID/QD
     Route: 042
     Dates: start: 20120427, end: 20120427
  24. DEXART [Concomitant]
     Dosage: 3.3 mg, UID/QD
     Route: 042
     Dates: start: 20120511, end: 20120511
  25. DEXART [Concomitant]
     Dosage: 3.3 mg, UID/QD
     Route: 042
     Dates: start: 20120518, end: 20120518
  26. DEXART [Concomitant]
     Dosage: 3.3 mg, UID/QD
     Route: 042
     Dates: start: 20120601, end: 20120601
  27. DEXART [Concomitant]
     Dosage: 6.6 mg, UID/QD
     Route: 042
     Dates: start: 20120608, end: 20120608
  28. DEXART [Concomitant]
     Dosage: 6.6 mg, UID/QD
     Route: 042
     Dates: start: 20120615, end: 20120615
  29. DEXART [Concomitant]
     Dosage: 6.6 mg, UID/QD
     Route: 042
     Dates: start: 20120706, end: 20120706
  30. DEXART [Concomitant]
     Dosage: 6.6 mg, UID/QD
     Route: 042
     Dates: start: 20120706, end: 20120706
  31. DEXART [Concomitant]
     Dosage: 6.6 mg, UID/QD
     Route: 042
     Dates: start: 20120720, end: 20120720
  32. DEXART [Concomitant]
     Dosage: 6.6 mg, UID/QD
     Route: 042
     Dates: start: 20120802, end: 20120802
  33. DEXART [Concomitant]
     Dosage: 6.6 mg, UID/QD
     Route: 042
     Dates: start: 20120817, end: 20120817
  34. DEXART [Concomitant]
     Dosage: 6.6 mg, UID/QD
     Route: 042
     Dates: start: 20120831, end: 20120831
  35. OXINORM                            /00045603/ [Concomitant]
     Indication: PRODUCT USED FOR UNKNOWN INDICATION
     Dosage: 2.5 mg, Unknown/D
     Route: 048
     Dates: start: 20120525
  36. LOXOPROFEN                         /00890702/ [Concomitant]
     Indication: PRODUCT USED FOR UNKNOWN INDICATION
     Dosage: 180 mg, UID/QD
     Route: 048
     Dates: start: 20120525, end: 20120615
  37. FAMOTIDINE D [Concomitant]
     Indication: GASTRIC ULCER
     Dosage: 40 mg, UID/QD
     Route: 048
     Dates: start: 20120713, end: 20120801

REACTIONS (17)
  - Anaemia [Recovering/Resolving]
  - Anaemia [Recovering/Resolving]
  - Anastomotic ulcer [Recovered/Resolved]
  - Neutrophil count decreased [Recovered/Resolved]
  - Neutrophil count decreased [Recovered/Resolved]
  - Diarrhoea [Recovered/Resolved]
  - Dermatitis acneiform [Recovered/Resolved]
  - Dermatitis acneiform [Recovered/Resolved]
  - Nausea [Recovered/Resolved]
  - Fatigue [Recovered/Resolved]
  - Nausea [Recovered/Resolved]
  - Decreased appetite [Recovered/Resolved]
  - Fatigue [Recovering/Resolving]
  - Diarrhoea [Recovered/Resolved]
  - Neutrophil count decreased [Recovered/Resolved]
  - Oedema peripheral [Recovered/Resolved]
  - Cholangitis [Recovered/Resolved]
